FAERS Safety Report 13447027 (Version 2)
Quarter: 2017Q3

REPORT INFORMATION
  Report Type: Spontaneous
  Country: US (occurrence: US)
  Receive Date: 20170417
  Receipt Date: 20170727
  Transmission Date: 20171127
  Serious: No
  Sender: FDA-Public Use
  Company Number: US-PFIZER INC-2017164794

PATIENT
  Age: 76 Year
  Sex: Female
  Weight: 72.12 kg

DRUGS (1)
  1. DICLOFENAC SODIUM. [Suspect]
     Active Substance: DICLOFENAC SODIUM
     Indication: INFLAMMATION
     Dosage: 75 MG, 2X/DAY FOR 14 DAYS
     Route: 048

REACTIONS (1)
  - Peripheral swelling [Not Recovered/Not Resolved]
